FAERS Safety Report 6285291-7 (Version None)
Quarter: 2009Q3

REPORT INFORMATION
  Report Type: 
  Country: None (occurrence: None)
  Receive Date: 20090727
  Receipt Date: 20090714
  Transmission Date: 20100115
  Serious: Yes (Hospitalization)
  Sender: FDA-Public Use
  Company Number: GR-ABBOTT-09P-066-0580976-00

PATIENT
  Age: 65 Year
  Sex: Female
  Weight: 57.3 kg

DRUGS (14)
  1. ZEMPLAR [Suspect]
     Indication: HYPERPARATHYROIDISM SECONDARY
     Route: 042
     Dates: start: 20070626
  2. ISCOVER [Concomitant]
     Indication: CORONARY ARTERY DISEASE
     Route: 048
     Dates: start: 20090413
  3. EUTHYROX [Concomitant]
     Indication: HYPOTHYROIDISM
     Route: 048
  4. IMDUR 60 [Concomitant]
     Indication: CORONARY ARTERY DISEASE
     Route: 048
     Dates: start: 20050101
  5. ZURCAZOL [Concomitant]
     Indication: PROPHYLAXIS
     Route: 048
     Dates: start: 20070101
  6. MIMPARA 60 [Concomitant]
     Indication: HYPERPARATHYROIDISM SECONDARY
     Route: 048
     Dates: start: 20081101
  7. RENAGEL 800 [Concomitant]
     Indication: HYPERPHOSPHATAEMIA
     Route: 048
     Dates: start: 20090201
  8. VASTAREL 35 [Concomitant]
     Indication: VERTIGO
     Route: 048
     Dates: start: 20090401
  9. NITRONG 10 [Concomitant]
     Indication: CORONARY ARTERY DISEASE
     Dates: start: 20050101
  10. SUPERAMINE [Concomitant]
     Indication: PERIPHERAL VASCULAR DISORDER
     Route: 042
     Dates: start: 20040101
  11. RETACRIT 6000 [Concomitant]
     Indication: ANAEMIA
     Route: 042
     Dates: start: 20090401
  12. INSPRA 25 [Concomitant]
     Indication: CARDIAC FAILURE CONGESTIVE
     Route: 048
     Dates: start: 20080901
  13. DILATREND 12.5 [Concomitant]
     Indication: CARDIAC FAILURE CONGESTIVE
     Route: 048
     Dates: start: 20080301
  14. LIPIDIL 600 [Concomitant]
     Indication: DYSLIPIDAEMIA
     Route: 048
     Dates: start: 20071001

REACTIONS (3)
  - FLUID RETENTION [None]
  - RESPIRATORY TRACT INFECTION [None]
  - VOMITING [None]
